FAERS Safety Report 4586715-3 (Version None)
Quarter: 2005Q1

REPORT INFORMATION
  Report Type: 
  Country: None (occurrence: None)
  Receive Date: 20050218
  Receipt Date: 20041105
  Transmission Date: 20050727
  Serious: Yes (Hospitalization, Other)
  Sender: FDA-Public Use
  Company Number: 200413416JP

PATIENT
  Age: 52 Year
  Sex: Female
  Weight: 60 kg

DRUGS (11)
  1. ARAVA [Suspect]
     Indication: HEPATIC FUNCTION ABNORMAL
     Route: 048
     Dates: start: 20040130, end: 20040409
  2. ARAVA [Suspect]
     Indication: PRURITUS
     Route: 048
     Dates: start: 20040130, end: 20040409
  3. RIDAURA [Concomitant]
     Indication: RHEUMATOID ARTHRITIS
     Route: 048
     Dates: start: 20031108, end: 20040129
  4. MINALFENE [Concomitant]
     Indication: RHEUMATOID ARTHRITIS
     Route: 048
     Dates: start: 19990122, end: 20040101
  5. CEROCRAL [Concomitant]
     Indication: AUTONOMIC NERVOUS SYSTEM IMBALANCE
     Route: 048
     Dates: start: 20031125, end: 20040101
  6. MERISLON [Concomitant]
     Indication: AUTONOMIC NERVOUS SYSTEM IMBALANCE
     Route: 048
     Dates: start: 20031125
  7. CERCINE [Concomitant]
     Indication: AUTONOMIC NERVOUS SYSTEM IMBALANCE
     Route: 048
     Dates: start: 20040108, end: 20040204
  8. PL GRAN. [Concomitant]
     Indication: NASOPHARYNGITIS
     Route: 048
     Dates: start: 20040108, end: 20040110
  9. MYTEAR [Concomitant]
     Indication: SJOGREN'S SYNDROME
     Dosage: DOSE: AS NEEDED
     Route: 047
  10. HYALEIN [Concomitant]
     Indication: SJOGREN'S SYNDROME
     Dosage: DOSE: AS NEEDED
     Route: 047
  11. STRONG NEO-MINOPHAGEN C [Concomitant]
     Indication: HEPATIC FUNCTION ABNORMAL
     Route: 042
     Dates: start: 20040205, end: 20040206

REACTIONS (10)
  - ALANINE AMINOTRANSFERASE INCREASED [None]
  - ASPARTATE AMINOTRANSFERASE INCREASED [None]
  - BLOOD ALKALINE PHOSPHATASE INCREASED [None]
  - BLOOD LACTATE DEHYDROGENASE INCREASED [None]
  - DRUG INEFFECTIVE [None]
  - FATIGUE [None]
  - GAMMA-GLUTAMYLTRANSFERASE INCREASED [None]
  - LIPIDS INCREASED [None]
  - PAIN [None]
  - PRURITUS GENERALISED [None]
